FAERS Safety Report 9773176 (Version 2)
Quarter: 2014Q1

REPORT INFORMATION
  Report Type: Spontaneous
  Country: GB (occurrence: GB)
  Receive Date: 20131219
  Receipt Date: 20140324
  Transmission Date: 20141002
  Serious: Yes (Other)
  Sender: FDA-Public Use
  Company Number: GB-ELI_LILLY_AND_COMPANY-GB201312002598

PATIENT
  Age: 71 Year
  Sex: Male

DRUGS (7)
  1. HUMALOG LISPRO [Suspect]
     Indication: DIABETES MELLITUS
     Dosage: 26 U, OTHER: WITH MEALS
     Route: 065
  2. HUMALOG LISPRO [Suspect]
     Dosage: 18 U, EACH MORNING
     Route: 065
  3. HUMALOG LISPRO [Suspect]
     Dosage: 25 U, OTHER: AT LUNCH
     Route: 065
  4. HUMALOG LISPRO [Suspect]
     Dosage: 24 U, EACH EVENING
     Route: 065
  5. LANTUS [Suspect]
     Indication: DIABETES MELLITUS
     Dosage: 30 U, EACH EVENING
     Route: 065
  6. LANTUS [Suspect]
     Dosage: 28 U, EACH EVENING
     Route: 065
  7. METOPROLOL                         /00376902/ [Concomitant]
     Indication: CARDIAC DISORDER
     Dosage: 50 MG, BID
     Route: 065
     Dates: start: 1984

REACTIONS (7)
  - Diabetes mellitus inadequate control [Unknown]
  - Blood glucose increased [Unknown]
  - Hypoglycaemia [Unknown]
  - Diarrhoea [Unknown]
  - Dehydration [Unknown]
  - Sleep disorder [Unknown]
  - Insomnia [Unknown]
